FAERS Safety Report 4584755-1 (Version None)
Quarter: 2005Q1

REPORT INFORMATION
  Report Type: 
  Country: None (occurrence: None)
  Receive Date: 20050215
  Receipt Date: 20050210
  Transmission Date: 20050727
  Serious: Yes (Other)
  Sender: FDA-Public Use
  Company Number: 004136

PATIENT
  Sex: Female

DRUGS (3)
  1. MEDROXYPROGESTERONE ACETATE [Suspect]
     Dates: start: 19970101
  2. PROVERA [Suspect]
     Dates: start: 19970101
  3. PREMARIN [Suspect]
     Dates: start: 19970101

REACTIONS (1)
  - BREAST CANCER IN SITU [None]
